FAERS Safety Report 8099823-X (Version None)
Quarter: 2012Q1

REPORT INFORMATION
  Report Type: 
  Country: None (occurrence: None)
  Receive Date: 20120129
  Receipt Date: 20111010
  Transmission Date: 20120608
  Serious: Yes (Hospitalization)
  Sender: FDA-Public Use
  Company Number: US-ABBOTT-11P-163-0862547-00

PATIENT
  Sex: Female
  Weight: 89.438 kg

DRUGS (3)
  1. POTASSIUM [Concomitant]
     Indication: BLOOD POTASSIUM DECREASED
  2. HUMIRA [Suspect]
     Indication: RHEUMATOID ARTHRITIS
     Route: 058
     Dates: start: 20110701, end: 20110930
  3. MAXZIDE [Concomitant]
     Indication: HYPERTENSION

REACTIONS (8)
  - CHEST PAIN [None]
  - NAUSEA [None]
  - CHILLS [None]
  - BLOOD POTASSIUM DECREASED [None]
  - PALPITATIONS [None]
  - FATIGUE [None]
  - CONTUSION [None]
  - ASTHENIA [None]
